FAERS Safety Report 4280628-2 (Version None)
Quarter: 2004Q1

REPORT INFORMATION
  Report Type: 
  Country: None (occurrence: None)
  Receive Date: 20040127
  Receipt Date: 20040120
  Transmission Date: 20041129
  Serious: Yes (Disabling)
  Sender: FDA-Public Use
  Company Number: 2003UW13342

PATIENT
  Age: 80 Year
  Sex: Female
  Weight: 71.6683 kg

DRUGS (11)
  1. RHINOCORT [Suspect]
     Indication: POSTNASAL DRIP
     Dosage: 2 SPRAY DAILY IN
     Route: 045
     Dates: start: 20030901, end: 20031101
  2. RHINOCORT [Suspect]
     Indication: RHINITIS
     Dosage: 2 SPRAY DAILY IN
     Route: 045
     Dates: start: 20030901, end: 20031101
  3. RHINOCORT [Suspect]
     Indication: SINUSITIS
     Dosage: 2 SPRAY DAILY IN
     Route: 045
     Dates: start: 20030901, end: 20031101
  4. NASACORT AQ [Suspect]
  5. DEMADEX [Concomitant]
  6. COUMADIN [Concomitant]
  7. PROTONIX [Concomitant]
  8. ASPIRIN [Concomitant]
  9. DIOVAN [Concomitant]
  10. PREMARIN [Concomitant]
  11. SYNTHROID [Concomitant]

REACTIONS (4)
  - AGEUSIA [None]
  - ANOSMIA [None]
  - BLOOD PRESSURE DECREASED [None]
  - PRURITUS [None]
